FAERS Safety Report 12898371 (Version 3)
Quarter: 2016Q4

REPORT INFORMATION
  Report Type: Spontaneous
  Country: US (occurrence: US)
  Receive Date: 20161031
  Receipt Date: 20161128
  Transmission Date: 20170207
  Serious: Yes (Other)
  Sender: FDA-Public Use
  Company Number: US-BELCHER PHARMACEUTICALS, LLC-2016VTS00226

PATIENT
  Age: 21 Year
  Sex: Male
  Weight: 87.3 kg

DRUGS (1)
  1. HYOSCYAMINE SULFATE. [Suspect]
     Active Substance: HYOSCYAMINE SULFATE
     Indication: IRRITABLE BOWEL SYNDROME
     Dosage: 0.125 MG, AS NEEDED
     Route: 048
     Dates: start: 2016, end: 20160930

REACTIONS (6)
  - Anxiety [Recovering/Resolving]
  - Hypertension [Recovered/Resolved]
  - Generalised tonic-clonic seizure [Not Recovered/Not Resolved]
  - Disturbance in attention [Recovered/Resolved]
  - Disorientation [Unknown]
  - Confusional state [Recovered/Resolved]

NARRATIVE: CASE EVENT DATE: 2016
